FAERS Safety Report 9796951 (Version 3)
Quarter: 2015Q1

REPORT INFORMATION
  Report Type: Spontaneous
  Country: US (occurrence: US)
  Receive Date: 20140105
  Receipt Date: 20150223
  Transmission Date: 20150721
  Serious: Yes (Death, Life-Threatening, Hospitalization, Other)
  Sender: FDA-Public Use
  Company Number: US-009507513-1401USA000365

PATIENT
  Sex: Female
  Weight: 89.8 kg

DRUGS (1)
  1. JANUVIA [Suspect]
     Active Substance: SITAGLIPTIN PHOSPHATE
     Indication: TYPE 2 DIABETES MELLITUS
     Dosage: 100 MG, QD
     Route: 048
     Dates: start: 20091102, end: 20110921

REACTIONS (19)
  - Small intestine carcinoma [Unknown]
  - Cardio-respiratory arrest [Fatal]
  - Arthralgia [Unknown]
  - Pancreatic carcinoma metastatic [Fatal]
  - Stent placement [Unknown]
  - Hepatic cirrhosis [Unknown]
  - Metastases to liver [Unknown]
  - Bile duct obstruction [Unknown]
  - Fatigue [Unknown]
  - Anaemia [Fatal]
  - Hyperglycaemia [Unknown]
  - Renal cyst [Unknown]
  - Constipation [Unknown]
  - Hypertension [Unknown]
  - Hypothyroidism [Unknown]
  - Snoring [Unknown]
  - Pleural effusion [Unknown]
  - Weight decreased [Unknown]
  - Jaundice cholestatic [Unknown]

NARRATIVE: CASE EVENT DATE: 201107
